FAERS Safety Report 9526790 (Version 2)
Quarter: 2013Q4

REPORT INFORMATION
  Report Type: Spontaneous
  Country: GB (occurrence: GB)
  Receive Date: 20130916
  Receipt Date: 20131217
  Transmission Date: 20140711
  Serious: Yes (Disabling, Other)
  Sender: FDA-Public Use
  Company Number: GB-TEVA-431647ISR

PATIENT
  Age: 74 Year
  Sex: Female
  Weight: 68.03 kg

DRUGS (1)
  1. AMITRIPTYLINE [Suspect]
     Indication: CARPAL TUNNEL SYNDROME
     Dosage: 50 MILLIGRAM DAILY;
     Route: 048
     Dates: start: 20100301, end: 20121231

REACTIONS (4)
  - Decreased appetite [Recovered/Resolved with Sequelae]
  - Social avoidant behaviour [Recovered/Resolved with Sequelae]
  - Depression [Recovered/Resolved with Sequelae]
  - Hallucination, visual [Recovered/Resolved]
